FAERS Safety Report 10019516 (Version 3)
Quarter: 2014Q1

REPORT INFORMATION
  Report Type: Spontaneous
  Country: US (occurrence: US)
  Receive Date: 20140318
  Receipt Date: 20140320
  Transmission Date: 20141002
  Serious: Yes (Other)
  Sender: FDA-Public Use
  Company Number: US-IAC JAPAN XML-USA-2013-0104862

PATIENT
  Sex: Female

DRUGS (6)
  1. BUTRANS [Suspect]
     Indication: BACK PAIN
     Dosage: 20 MCG/HR, WEEKLY
     Route: 062
     Dates: start: 2012
  2. TOPAMAX [Concomitant]
     Indication: PRODUCT USED FOR UNKNOWN INDICATION
     Dosage: 50 MG, HS
     Route: 048
  3. VICODIN [Concomitant]
     Indication: BREAKTHROUGH PAIN
     Dosage: 7.5MG/300MG, Q6H PRN
     Route: 048
  4. ZANAFLEX [Concomitant]
     Indication: MUSCLE SPASMS
     Dosage: 4 MG, TID
     Route: 048
  5. CELEXA                             /00582602/ [Concomitant]
     Indication: ANXIETY
     Dosage: 40 MG, UNK
     Route: 048
  6. ATIVAN [Concomitant]
     Indication: ANXIETY
     Dosage: 0.5 MG, QID PRN
     Route: 048

REACTIONS (8)
  - Surgery [Unknown]
  - Drug screen negative [Unknown]
  - Application site haemorrhage [Recovered/Resolved]
  - Drug administered at inappropriate site [Unknown]
  - Drug effect decreased [Unknown]
  - Application site pruritus [Recovered/Resolved]
  - Application site pain [Recovered/Resolved]
  - Product adhesion issue [Recovered/Resolved]
